FAERS Safety Report 5907344-2 (Version None)
Quarter: 2008Q4

REPORT INFORMATION
  Report Type: 
  Country: None (occurrence: None)
  Receive Date: 20081003
  Receipt Date: 20080922
  Transmission Date: 20090506
  Serious: Yes (Hospitalization)
  Sender: FDA-Public Use
  Company Number: US-WATSON-2008-05654

PATIENT
  Age: 79 Year
  Sex: Female
  Weight: 85.714 kg

DRUGS (4)
  1. FENTANYL-50 [Suspect]
     Indication: BACK PAIN
     Dosage: 1 PATCH, Q 72 HOURS
     Route: 062
  2. FENTANYL-50 [Suspect]
     Dosage: 1 PATCH, Q 72 HOURS
     Route: 062
     Dates: start: 20070901
  3. CYMBALTA [Concomitant]
     Indication: DEPRESSION
     Dosage: UNK
     Route: 065
  4. OXYBUTYNIN [Concomitant]
     Indication: BLADDER DISORDER
     Dosage: UNK
     Route: 065

REACTIONS (8)
  - BACK PAIN [None]
  - DEPRESSED MOOD [None]
  - DEPRESSION [None]
  - DEVICE RELATED INFECTION [None]
  - DRUG INEFFECTIVE [None]
  - PNEUMONIA [None]
  - SUICIDAL IDEATION [None]
  - WITHDRAWAL SYNDROME [None]
